FAERS Safety Report 15766647 (Version 1)
Quarter: 2018Q4

REPORT INFORMATION
  Report Type: Spontaneous
  Country: BE (occurrence: BE)
  Receive Date: 20181227
  Receipt Date: 20181227
  Transmission Date: 20190205
  Serious: Yes (Hospitalization)
  Sender: FDA-Public Use
  Company Number: BE-PFIZER INC-2018521727

PATIENT
  Age: 72 Year
  Sex: Female

DRUGS (4)
  1. SUPRADYN VITAL 50+ [ASCORBIC ACID;BIOTIN;CALCIUM CARBONATE;CALCIUM PAN [Suspect]
     Active Substance: VITAMINS
     Dosage: UNK
     Route: 065
  2. ARIPIPRAZOLE. [Suspect]
     Active Substance: ARIPIPRAZOLE
     Dosage: UNK
     Route: 065
  3. VENLAFAXINE HCL [Suspect]
     Active Substance: VENLAFAXINE HYDROCHLORIDE
     Dosage: 150 MG, 1X/DAY (QD)
     Route: 065
  4. PROPIVERINE [Suspect]
     Active Substance: PROPIVERINE
     Dosage: UNK
     Route: 065

REACTIONS (1)
  - Fall [Unknown]
